FAERS Safety Report 8986610 (Version 1)
Quarter: 2012Q4

REPORT INFORMATION
  Report Type: 
  Country: BD (occurrence: BD)
  Receive Date: 20121227
  Receipt Date: 20121227
  Transmission Date: 20130627
  Serious: Yes (Death, Hospitalization)
  Sender: FDA-Public Use
  Company Number: PHHY2012BD119801

PATIENT
  Age: 75 Year
  Sex: Female

DRUGS (2)
  1. EXELON PATCH [Suspect]
     Indication: DEMENTIA
     Dosage: 4.6 mg daily (5 cm)
     Route: 062
     Dates: start: 201110, end: 201112
  2. INSULIN [Suspect]

REACTIONS (3)
  - Cerebrovascular accident [Fatal]
  - Movement disorder [Unknown]
  - Drug prescribing error [Unknown]
